FAERS Safety Report 9738408 (Version 3)
Quarter: 2014Q2

REPORT INFORMATION
  Report Type: Report from Study
  Country: CA (occurrence: CA)
  Receive Date: 20131208
  Receipt Date: 20140410
  Transmission Date: 20141212
  Serious: Yes (Other)
  Sender: FDA-Public Use
  Company Number: CA-ROCHE-1310168

PATIENT
  Age: 61 Year
  Sex: Male

DRUGS (5)
  1. ACTEMRA [Suspect]
     Indication: RHEUMATOID ARTHRITIS
     Dosage: ONGOING (PREVIOUS END DATE: 09/OCT/2013)
     Route: 042
     Dates: start: 20130808
  2. METHOTREXATE [Concomitant]
  3. COZARTAN [Concomitant]
  4. SYNTHROID [Concomitant]
  5. LIPITOR [Concomitant]

REACTIONS (6)
  - Ventricular extrasystoles [Unknown]
  - Hypersensitivity [Unknown]
  - Infected bites [Unknown]
  - Nausea [Unknown]
  - Heart rate increased [Unknown]
  - Malaise [Unknown]
